FAERS Safety Report 10077219 (Version 3)
Quarter: 2014Q2

REPORT INFORMATION
  Report Type: Spontaneous
  Country: AR (occurrence: None)
  Receive Date: 20140410
  Receipt Date: 20140603
  Transmission Date: 20141212
  Serious: Yes (Death, Hospitalization)
  Sender: FDA-Public Use
  Company Number: 2014000101

PATIENT
  Age: 60 Year
  Sex: Male

DRUGS (1)
  1. ACEON [Suspect]
     Indication: HYPERTENSION
     Route: 048
     Dates: end: 201312

REACTIONS (15)
  - Pancreatitis [None]
  - Pancreatic pseudocyst [None]
  - Abscess [None]
  - Acute respiratory distress syndrome [None]
  - Abdominal pain upper [None]
  - Abdominal pain [None]
  - Vomiting [None]
  - Amylase increased [None]
  - Pancreatic cyst [None]
  - Pancreatic abscess [None]
  - Pancreatitis acute [None]
  - Renal failure [None]
  - Drug-induced liver injury [None]
  - Multi-organ failure [None]
  - Septic shock [None]
